FAERS Safety Report 6820681-2 (Version None)
Quarter: 2010Q3

REPORT INFORMATION
  Report Type: 
  Country: None (occurrence: None)
  Receive Date: 20100707
  Receipt Date: 20100623
  Transmission Date: 20110219
  Serious: Yes (Hospitalization)
  Sender: FDA-Public Use
  Company Number: DE-ELI_LILLY_AND_COMPANY-DE201004006255

PATIENT
  Age: 47 Year
  Sex: Female

DRUGS (5)
  1. ZYPREXA [Suspect]
     Indication: BIPOLAR DISORDER
     Dosage: 10 MG, DAILY (1/D)
     Route: 048
     Dates: end: 20100421
  2. ZYPREXA [Suspect]
     Dosage: 120 MG, DAILY (1/D)
     Route: 048
     Dates: start: 20100422, end: 20100422
  3. ZYPREXA [Suspect]
     Dosage: 60 MG, DAILY (1/D)
     Route: 048
     Dates: start: 20100423, end: 20100423
  4. PROMETHAZINE [Concomitant]
  5. DIAZEPAM [Concomitant]

REACTIONS (3)
  - MANIA [None]
  - OVERDOSE [None]
  - TENSION [None]
